FAERS Safety Report 9564438 (Version 1)
Quarter: 2013Q3

REPORT INFORMATION
  Report Type: Spontaneous
  Country: KR (occurrence: KR)
  Receive Date: 20130930
  Receipt Date: 20130930
  Transmission Date: 20140515
  Serious: Yes (Other)
  Sender: FDA-Public Use
  Company Number: KR-JNJFOC-20130912113

PATIENT
  Sex: 0

DRUGS (2)
  1. ACETAMINOPHEN [Suspect]
     Route: 065
  2. ACETAMINOPHEN [Suspect]
     Indication: PRODUCT USED FOR UNKNOWN INDICATION
     Route: 065

REACTIONS (2)
  - Bronchial hyperreactivity [Unknown]
  - Asthma [Unknown]
